FAERS Safety Report 20449127 (Version 1)
Quarter: 2022Q1

REPORT INFORMATION
  Report Type: Spontaneous
  Country: US (occurrence: None)
  Receive Date: 20220208
  Receipt Date: 20220208
  Transmission Date: 20220423
  Serious: No
  Sender: FDA-Public Use
  Company Number: None

PATIENT
  Age: 36 Year
  Sex: Female

DRUGS (1)
  1. CAPECITABINE [Suspect]
     Active Substance: CAPECITABINE
     Dosage: 1500 MG BID ORAL?
     Route: 048
     Dates: start: 202108

REACTIONS (2)
  - Therapy interrupted [None]
  - Abdominal operation [None]

NARRATIVE: CASE EVENT DATE: 20220103
